FAERS Safety Report 10617548 (Version 1)
Quarter: 2014Q4

REPORT INFORMATION
  Report Type: Report from Study
  Country: CA (occurrence: CA)
  Receive Date: 20141201
  Receipt Date: 20141201
  Transmission Date: 20150529
  Serious: Yes (Other)
  Sender: FDA-Public Use
  Company Number: CA-ABBVIE-14K-028-1312565-00

PATIENT
  Sex: Female

DRUGS (1)
  1. HUMIRA [Suspect]
     Active Substance: ADALIMUMAB
     Indication: ANKYLOSING SPONDYLITIS
     Route: 058
     Dates: start: 20121026, end: 2014

REACTIONS (2)
  - Corneal abrasion [Not Recovered/Not Resolved]
  - Conjunctivitis viral [Not Recovered/Not Resolved]

NARRATIVE: CASE EVENT DATE: 2014
